FAERS Safety Report 23549219 (Version 1)
Quarter: 2024Q1

REPORT INFORMATION
  Report Type: Spontaneous
  Country: US (occurrence: US)
  Receive Date: 20240221
  Receipt Date: 20240221
  Transmission Date: 20240410
  Serious: No
  Sender: FDA-Public Use
  Company Number: US-PFIZER INC-PV202400023858

PATIENT
  Age: 73 Year
  Sex: Male
  Weight: 99.1 kg

DRUGS (1)
  1. BOSULIF [Suspect]
     Active Substance: BOSUTINIB MONOHYDRATE
     Indication: Chronic myeloid leukaemia
     Dosage: TAKE 400 MG 1 (ONE) TIME EACH DAY
     Route: 048

REACTIONS (1)
  - Vitamin B12 decreased [Unknown]

NARRATIVE: CASE EVENT DATE: 20230101
